FAERS Safety Report 15548431 (Version 1)
Quarter: 2018Q4

REPORT INFORMATION
  Report Type: Spontaneous
  Country: US (occurrence: US)
  Receive Date: 20181025
  Receipt Date: 20181025
  Transmission Date: 20190205
  Serious: No
  Sender: FDA-Public Use
  Company Number: US-TEVA-2018-US-963733

PATIENT
  Sex: Female

DRUGS (1)
  1. CLONAZEPAM TEVA [Suspect]
     Active Substance: CLONAZEPAM
     Dosage: 1 MILLIGRAM DAILY;

REACTIONS (5)
  - Crying [Unknown]
  - Feeling abnormal [Unknown]
  - Drug ineffective [Unknown]
  - Feeling hot [Unknown]
  - Feeling jittery [Unknown]
